FAERS Safety Report 7434321-5 (Version None)
Quarter: 2011Q2

REPORT INFORMATION
  Report Type: 
  Country: None (occurrence: None)
  Receive Date: 20110425
  Receipt Date: 20110420
  Transmission Date: 20111010
  Serious: No
  Sender: FDA-Public Use
  Company Number: US-PFIZER INC-2011086984

PATIENT
  Sex: Male
  Weight: 102.95 kg

DRUGS (10)
  1. ONGLYZA [Concomitant]
     Indication: DIABETES MELLITUS
     Dosage: 5 MG, 1X/DAY
  2. PREVACID [Concomitant]
     Indication: GASTROOESOPHAGEAL REFLUX DISEASE
     Dosage: DAILY BEFORE BEDTIME
  3. LOVAZA [Concomitant]
     Indication: BLOOD TRIGLYCERIDES INCREASED
     Dosage: 1 MG, 2X/DAY
  4. METFORMIN [Concomitant]
     Indication: DIABETES MELLITUS
     Dosage: 1000 MG, 1X/DAY
  5. ZOLOFT [Suspect]
     Indication: DEPRESSION
     Dosage: 50 MG, 1X/DAY
  6. NEXIUM [Concomitant]
     Indication: GASTROOESOPHAGEAL REFLUX DISEASE
     Dosage: 40 MG, 1X/DAY
  7. CHANTIX [Suspect]
     Indication: SMOKING CESSATION THERAPY
     Dosage: 0.5 MG, 1X/DAY
     Route: 048
     Dates: start: 20110301, end: 20110101
  8. CHANTIX [Suspect]
     Dosage: UNK
     Route: 048
     Dates: start: 20110101, end: 20110401
  9. BENICAR [Concomitant]
     Indication: HYPERTENSION
     Dosage: 40 MG, 1X/DAY
  10. ACTIGALL [Concomitant]
     Indication: HEPATIC STEATOSIS
     Dosage: 300 MG, 3X/DAY

REACTIONS (1)
  - NEGATIVE THOUGHTS [None]
